FAERS Safety Report 9579399 (Version 1)
Quarter: 2013Q4

REPORT INFORMATION
  Report Type: Spontaneous
  Country: US (occurrence: US)
  Receive Date: 20131001
  Receipt Date: 20131001
  Transmission Date: 20140711
  Serious: No
  Sender: FDA-Public Use
  Company Number: US-AMGEN-USASP2013025404

PATIENT
  Age: 7 Year
  Sex: Male
  Weight: 18.8 kg

DRUGS (1)
  1. EPOGEN [Suspect]
     Indication: RENAL FAILURE CHRONIC
     Dosage: 425 UNITS/KG, Q2WK

REACTIONS (2)
  - Haemoglobin decreased [Unknown]
  - Pyrexia [Recovered/Resolved]
